FAERS Safety Report 7101236-1 (Version None)
Quarter: 2010Q4

REPORT INFORMATION
  Report Type: 
  Country: None (occurrence: None)
  Receive Date: 20101115
  Receipt Date: 20101102
  Transmission Date: 20110411
  Serious: Yes (Hospitalization)
  Sender: FDA-Public Use
  Company Number: CH-JNJFOC-20101100625

PATIENT
  Age: 20 Year
  Sex: Female

DRUGS (13)
  1. HALDOL [Suspect]
     Indication: SCHIZOPHRENIA
     Route: 048
  2. HALDOL [Suspect]
     Route: 048
  3. HALDOL [Suspect]
     Route: 048
  4. HALDOL [Suspect]
     Route: 048
  5. HALDOL [Suspect]
     Route: 048
  6. HALDOL [Suspect]
     Route: 048
  7. HALDOL [Suspect]
     Route: 048
  8. CLOPINE [Suspect]
     Indication: PRODUCT USED FOR UNKNOWN INDICATION
     Route: 048
  9. CLOPINE [Suspect]
     Route: 048
  10. CLOPINE [Suspect]
     Route: 048
  11. CLOPINE [Suspect]
     Route: 048
  12. TEMESTA [Concomitant]
     Indication: PRODUCT USED FOR UNKNOWN INDICATION
     Dosage: 7.5 TO 0.5 MG/DAY
     Route: 065
  13. METOPROLOL SUCCINATE [Concomitant]
     Indication: PRODUCT USED FOR UNKNOWN INDICATION
     Dosage: 50 TO 100 MG/DAY
     Route: 048

REACTIONS (3)
  - NERVOUSNESS [None]
  - SALIVARY HYPERSECRETION [None]
  - SINUS TACHYCARDIA [None]
